FAERS Safety Report 7131602 (Version 3)
Quarter: 2013Q3

REPORT INFORMATION
  Report Type: Spontaneous
  Country: None (occurrence: None)
  Receive Date: 20090915
  Receipt Date: 20130710
  Transmission Date: 20140515
  Serious: Yes (Other)
  Sender: FDA-Public Use
  Company Number: AUR-APL-2009-00569

PATIENT
  Age: 48 Year
  Sex: Male

DRUGS (5)
  1. DIDANOSINE [Suspect]
     Indication: HIV INFECTION
  2. LAMIVUDINE [Suspect]
     Indication: HIV INFECTION
  3. EFAVIRENZ [Suspect]
     Indication: HIV INFECTION
  4. EMTRICITABINE [Suspect]
     Indication: HIV INFECTION
  5. TENOFOVIR [Suspect]
     Indication: HIV INFECTION

REACTIONS (5)
  - Portal hypertension [None]
  - Oesophageal varices haemorrhage [None]
  - Portal hypertensive gastropathy [None]
  - Splenomegaly [None]
  - Drug ineffective [None]
